FAERS Safety Report 9822508 (Version 1)
Quarter: 2014Q1

REPORT INFORMATION
  Report Type: Report from Study
  Country: CO (occurrence: CO)
  Receive Date: 20140116
  Receipt Date: 20140116
  Transmission Date: 20141002
  Serious: Yes (Other)
  Sender: FDA-Public Use
  Company Number: CO-ROCHE-1332732

PATIENT
  Age: 13 Year
  Sex: Male
  Weight: 48 kg

DRUGS (3)
  1. XOLAIR [Suspect]
     Indication: PRODUCT USED FOR UNKNOWN INDICATION
     Route: 058
  2. XOLAIR [Suspect]
     Route: 058
     Dates: start: 20121117
  3. LEVOCETIRIZINE DIHYDROCHLORIDE [Concomitant]

REACTIONS (5)
  - Dengue fever [Unknown]
  - Abdominal pain upper [Recovered/Resolved]
  - Vomiting [Recovered/Resolved]
  - Colitis [Recovered/Resolved]
  - Pharyngitis [Recovered/Resolved]
